FAERS Safety Report 6098738-6 (Version None)
Quarter: 2009Q1

REPORT INFORMATION
  Report Type: 
  Country: None (occurrence: None)
  Receive Date: 20090302
  Receipt Date: 20090218
  Transmission Date: 20090719
  Serious: Yes (Hospitalization)
  Sender: FDA-Public Use
  Company Number: US-PFIZER INC-2009155900

PATIENT
  Sex: Male
  Weight: 88 kg

DRUGS (11)
  1. SUNITINIB MALATE [Suspect]
     Indication: RENAL CELL CARCINOMA
     Dosage: 37.5 MG, QOD
     Route: 048
     Dates: start: 20080909
  2. ERLOTINIB [Suspect]
     Indication: RENAL CELL CARCINOMA
     Dosage: 125 MG, QOD
     Route: 048
     Dates: start: 20080909
  3. ERLOTINIB [Suspect]
  4. ALEVE [Concomitant]
     Dosage: DAILY
     Route: 048
  5. ALLOPURINOL [Concomitant]
     Dosage: 100 MG, DAILY
     Route: 048
  6. LIPITOR [Concomitant]
     Dosage: 20 MG, TAB
  7. LISINOPRIL [Concomitant]
     Dosage: 10 MG, UNK
     Route: 048
  8. MINOCYCLINE [Concomitant]
     Dosage: 100 MG, UNK
     Route: 048
  9. NIACIN [Concomitant]
     Dosage: 500 MG, UNK
     Route: 048
  10. PANTOPRAZOLE SODIUM [Concomitant]
     Dosage: 40 MG, UNK
     Route: 048
  11. POTASSIUM CHLORIDE [Concomitant]
     Dosage: 10 MEQ, UNK
     Route: 048

REACTIONS (1)
  - HYPOMAGNESAEMIA [None]
